FAERS Safety Report 21771721 (Version 2)
Quarter: 2023Q1

REPORT INFORMATION
  Report Type: Spontaneous
  Country: AT (occurrence: AT)
  Receive Date: 20221223
  Receipt Date: 20230111
  Transmission Date: 20230418
  Serious: Yes (Other)
  Sender: FDA-Public Use
  Company Number: AT-GSKCCFEMEA-Case-01634752_AE-65510

PATIENT

DRUGS (1)
  1. LAMICTAL [Suspect]
     Active Substance: LAMOTRIGINE
     Indication: Product used for unknown indication
     Dosage: 100 MG, QD, PACK SIZE WAS 100MG 5X10,

REACTIONS (4)
  - Wound haemorrhage [Unknown]
  - Product package associated injury [Not Recovered/Not Resolved]
  - Loss of personal independence in daily activities [Unknown]
  - Product complaint [Unknown]

NARRATIVE: CASE EVENT DATE: 20221212
